FAERS Safety Report 5241990-7 (Version None)
Quarter: 2007Q1

REPORT INFORMATION
  Report Type: 
  Country: None (occurrence: None)
  Receive Date: 20070220
  Receipt Date: 20070208
  Transmission Date: 20070707
  Serious: Yes (Other)
  Sender: FDA-Public Use
  Company Number: FR-PFIZER INC-2007010577

PATIENT
  Age: 65 Year
  Sex: Female

DRUGS (1)
  1. ZYVOX [Suspect]
     Indication: BACTERIAL ABSCESS CENTRAL NERVOUS SYSTEM

REACTIONS (1)
  - RENAL FAILURE [None]
